FAERS Safety Report 8607547-2 (Version None)
Quarter: 2012Q3

REPORT INFORMATION
  Report Type: 
  Country: None (occurrence: None)
  Receive Date: 20120821
  Receipt Date: 20120809
  Transmission Date: 20120928
  Serious: No
  Sender: FDA-Public Use
  Company Number: US-BAYER-2012-082586

PATIENT
  Sex: Female

DRUGS (1)
  1. CLIMARA [Suspect]
     Indication: PRODUCT USED FOR UNKNOWN INDICATION
     Dosage: DAILY DOSE .05 MG
     Route: 062
     Dates: start: 20070101

REACTIONS (2)
  - ABDOMINAL PAIN LOWER [None]
  - PRODUCT ADHESION ISSUE [None]
